FAERS Safety Report 9094924 (Version 1)
Quarter: 2013Q1

REPORT INFORMATION
  Report Type: Spontaneous
  Country: US (occurrence: None)
  Receive Date: 20130214
  Receipt Date: 20130214
  Transmission Date: 20140127
  Serious: Yes (Other)
  Sender: FDA-Public Use
  Company Number: None

PATIENT
  Age: 62 Year
  Sex: Male
  Weight: 113 kg

DRUGS (3)
  1. RIVAROXABAN [Suspect]
     Indication: ORTHOPAEDIC PROCEDURE
     Route: 048
     Dates: start: 20130204, end: 20130206
  2. RIVAROXABAN [Suspect]
     Indication: THROMBOSIS PROPHYLAXIS
     Route: 048
     Dates: start: 20130204, end: 20130206
  3. RIVAROXABAN [Suspect]
     Indication: POSTOPERATIVE CARE
     Route: 048
     Dates: start: 20130204, end: 20130206

REACTIONS (3)
  - Arthralgia [None]
  - Haemarthrosis [None]
  - Post procedural haemorrhage [None]
